FAERS Safety Report 25385351 (Version 1)
Quarter: 2025Q2

REPORT INFORMATION
  Report Type: Spontaneous
  Country: US (occurrence: None)
  Receive Date: 20250601
  Receipt Date: 20250601
  Transmission Date: 20250717
  Serious: Yes (Life-Threatening, Hospitalization, Disabling)
  Sender: FDA-CTU
  Company Number: None

PATIENT
  Age: 66 Year
  Sex: Female
  Weight: 59.4 kg

DRUGS (3)
  1. VENLAFAXINE [Suspect]
     Active Substance: VENLAFAXINE HYDROCHLORIDE
     Indication: Depression
     Route: 048
     Dates: start: 20020901, end: 20231001
  2. VENLAFAXINE [Suspect]
     Active Substance: VENLAFAXINE HYDROCHLORIDE
     Indication: Generalised anxiety disorder
  3. CELEXA [Suspect]
     Active Substance: CITALOPRAM HYDROBROMIDE

REACTIONS (12)
  - Withdrawal syndrome [None]
  - Malaise [None]
  - Panic disorder [None]
  - Suicidal ideation [None]
  - Decreased appetite [None]
  - Insomnia [None]
  - Depression [None]
  - Vision blurred [None]
  - Hyperacusis [None]
  - Palpitations [None]
  - Sensory disturbance [None]
  - Influenza like illness [None]

NARRATIVE: CASE EVENT DATE: 20231001
